FAERS Safety Report 23438109 (Version 2)
Quarter: 2024Q1

REPORT INFORMATION
  Report Type: Spontaneous
  Country: US (occurrence: US)
  Receive Date: 20240124
  Receipt Date: 20240125
  Transmission Date: 20240410
  Serious: No
  Sender: FDA-Public Use
  Company Number: US-ASTELLAS-2024US000947

PATIENT
  Sex: Female

DRUGS (5)
  1. IZERVAY [Suspect]
     Active Substance: AVACINCAPTAD PEGOL SODIUM
     Indication: Product used for unknown indication
     Dosage: UNK UNK, UNKNOWN FREQ. (UNSPECIFIED EYE)
     Route: 065
     Dates: start: 202312, end: 202312
  2. IZERVAY [Suspect]
     Active Substance: AVACINCAPTAD PEGOL SODIUM
     Indication: Product used for unknown indication
     Dosage: UNK UNK, UNKNOWN FREQ. (UNSPECIFIED EYE)
     Route: 065
     Dates: start: 202312, end: 202312
  3. IZERVAY [Suspect]
     Active Substance: AVACINCAPTAD PEGOL SODIUM
     Indication: Product used for unknown indication
     Dosage: UNK UNK, UNKNOWN FREQ. (UNSPECIFIED EYE)
     Route: 065
     Dates: start: 202312, end: 202312
  4. IZERVAY [Suspect]
     Active Substance: AVACINCAPTAD PEGOL SODIUM
     Indication: Product used for unknown indication
     Dosage: UNK UNK, UNKNOWN FREQ. (UNSPECIFIED EYE)
     Route: 065
     Dates: start: 202312, end: 202312
  5. IZERVAY [Suspect]
     Active Substance: AVACINCAPTAD PEGOL SODIUM
     Indication: Product used for unknown indication
     Dosage: UNK UNK, UNKNOWN FREQ. (UNSPECIFIED EYE)
     Route: 065
     Dates: start: 202312, end: 202312

REACTIONS (2)
  - Eye inflammation [Unknown]
  - Visual acuity reduced [Recovering/Resolving]
